FAERS Safety Report 6422432-2 (Version None)
Quarter: 2009Q4

REPORT INFORMATION
  Report Type: 
  Country: None (occurrence: None)
  Receive Date: 20091030
  Receipt Date: 20091019
  Transmission Date: 20100525
  Serious: Yes (Hospitalization)
  Sender: FDA-Public Use
  Company Number: FR-GILEAD-2009-0024929

PATIENT
  Sex: Male

DRUGS (18)
  1. TRUVADA [Suspect]
     Indication: HIV INFECTION
     Route: 048
     Dates: start: 20090604
  2. ISENSTRESS [Suspect]
     Indication: HIV INFECTION
     Route: 048
     Dates: start: 20090604
  3. FLAGYL [Suspect]
     Route: 048
     Dates: start: 20090529, end: 20090608
  4. CLAFORAN [Suspect]
     Route: 048
     Dates: start: 20090529, end: 20090608
  5. VANCOMYCIN [Suspect]
     Route: 042
     Dates: start: 20090616, end: 20090702
  6. NEXIUM [Suspect]
     Route: 048
  7. ISOPTIN [Suspect]
     Route: 048
  8. TERCIAN [Suspect]
     Route: 048
     Dates: end: 20090616
  9. LYRICA [Suspect]
     Route: 048
     Dates: end: 20090616
  10. ZYPREXA [Suspect]
     Route: 048
  11. RIVOTRIL [Suspect]
     Route: 048
  12. NICOPATCH [Suspect]
  13. MAG 2 [Suspect]
     Route: 048
  14. LEDERFOLINE [Suspect]
     Route: 048
  15. IMOVANE [Suspect]
     Route: 048
  16. SERETIDE [Suspect]
     Route: 055
  17. DOLIPRANE [Suspect]
     Route: 048
  18. VITAMIN B COMPLEX CAP [Suspect]

REACTIONS (1)
  - THROMBOCYTOPENIA [None]
